FAERS Safety Report 19880754 (Version 5)
Quarter: 2022Q1

REPORT INFORMATION
  Report Type: Spontaneous
  Country: AU (occurrence: AU)
  Receive Date: 20210925
  Receipt Date: 20220221
  Transmission Date: 20220423
  Serious: Yes (Death, Other)
  Sender: FDA-Public Use
  Company Number: AU-ABBVIE-21K-008-4091366-00

PATIENT
  Age: 69 Year
  Sex: Male

DRUGS (3)
  1. IBRUTINIB [Suspect]
     Active Substance: IBRUTINIB
     Indication: Chronic lymphocytic leukaemia
     Route: 048
  2. VENETOCLAX [Suspect]
     Active Substance: VENETOCLAX
     Indication: Product used for unknown indication
     Route: 048
  3. RITUXIMAB [Concomitant]
     Active Substance: RITUXIMAB
     Indication: Product used for unknown indication

REACTIONS (4)
  - Death [Fatal]
  - Transplant failure [Unknown]
  - Chronic lymphocytic leukaemia recurrent [Unknown]
  - Chromosomal deletion [Unknown]

NARRATIVE: CASE EVENT DATE: 20190101
